FAERS Safety Report 12392978 (Version 1)
Quarter: 2016Q2

REPORT INFORMATION
  Report Type: Spontaneous
  Country: US (occurrence: US)
  Receive Date: 20160523
  Receipt Date: 20160523
  Transmission Date: 20160815
  Serious: No
  Sender: FDA-Public Use
  Company Number: US-PFIZER INC-2016234303

PATIENT
  Age: 86 Year
  Sex: Male
  Weight: 80 kg

DRUGS (4)
  1. NORCO [Concomitant]
     Active Substance: ACETAMINOPHEN\HYDROCODONE BITARTRATE
     Indication: PAIN
     Dosage: 5/325 1 EVERY 4 HOURS, AS NEEDED
     Dates: start: 20160328
  2. SUTENT [Concomitant]
     Active Substance: SUNITINIB MALATE
     Indication: RENAL CELL CARCINOMA
     Dosage: 50 MG, DAILY, 12.5MG CAPSULE, 4 CAPSULES DAILY
     Route: 048
     Dates: start: 20160307, end: 20160328
  3. METAXALONE. [Suspect]
     Active Substance: METAXALONE
     Indication: MYALGIA
     Dosage: 800 MG, 3X/DAY
     Route: 048
     Dates: start: 20160328
  4. ZOFRAN [Concomitant]
     Active Substance: ONDANSETRON HYDROCHLORIDE
     Indication: NAUSEA
     Dosage: 8 MG, AS NEEDED, EVERY 8 HOUR
     Route: 048
     Dates: start: 201603

REACTIONS (1)
  - Drug ineffective [Unknown]
